FAERS Safety Report 25087073 (Version 1)
Quarter: 2025Q1

REPORT INFORMATION
  Report Type: Spontaneous
  Country: US (occurrence: US)
  Receive Date: 20250318
  Receipt Date: 20250318
  Transmission Date: 20250409
  Serious: No
  Sender: AILEX PHARMACEUTICALS LLC
  Company Number: AP-2025-US-6388

PATIENT
  Sex: Female

DRUGS (1)
  1. CROMOLYN SODIUM [Suspect]
     Active Substance: CROMOLYN SODIUM
     Route: 065
     Dates: start: 2024

REACTIONS (3)
  - Intentional product use issue [Unknown]
  - Product use issue [Unknown]
  - Product availability issue [Unknown]
